FAERS Safety Report 21132283 (Version 1)
Quarter: 2022Q3

REPORT INFORMATION
  Report Type: Spontaneous
  Country: IT (occurrence: IT)
  Receive Date: 20220726
  Receipt Date: 20220726
  Transmission Date: 20221027
  Serious: Yes (Other)
  Sender: FDA-Public Use
  Company Number: None

PATIENT

DRUGS (3)
  1. TIVICAY [Suspect]
     Active Substance: DOLUTEGRAVIR SODIUM
     Indication: HIV infection
     Dosage: 50 MG, QD (1 TABLET / DAY = 50 MG)
     Route: 048
     Dates: start: 20170911, end: 20170914
  2. EDURANT [Suspect]
     Active Substance: RILPIVIRINE HYDROCHLORIDE
     Indication: HIV infection
     Dosage: 25 MG, QD (1 TABLET / DAY = 25 MG)
     Route: 048
     Dates: start: 20170911, end: 20170914
  3. CHOLECALCIFEROL [Concomitant]
     Active Substance: CHOLECALCIFEROL
     Indication: Product used for unknown indication
     Dosage: 40 GTT (DIBASE 40 DROPS / WEEK EQUAL TO 10000 IU / SEVEN DAYS.)
     Route: 048
     Dates: start: 20141121

REACTIONS (3)
  - Hallucinations, mixed [Recovered/Resolved]
  - Neurotoxicity [Recovered/Resolved]
  - Insomnia [Recovered/Resolved]

NARRATIVE: CASE EVENT DATE: 20170911
